FAERS Safety Report 4919904-6 (Version None)
Quarter: 2006Q1

REPORT INFORMATION
  Report Type: 
  Country: None (occurrence: None)
  Receive Date: 20060223
  Receipt Date: 20060123
  Transmission Date: 20060701
  Serious: Yes (Death, Hospitalization)
  Sender: FDA-Public Use
  Company Number: US-BRISTOL-MYERS SQUIBB COMPANY-13256334

PATIENT
  Age: 81 Year
  Sex: Male
  Weight: 98 kg

DRUGS (9)
  1. COUMADIN [Suspect]
     Indication: COAGULOPATHY
     Route: 048
     Dates: start: 20040420, end: 20050701
  2. LIPITOR [Concomitant]
  3. ATENOLOL [Concomitant]
  4. LASIX [Concomitant]
  5. HYZAAR [Concomitant]
  6. GLYBURIDE [Concomitant]
  7. SUMYCIN [Concomitant]
     Indication: ROSACEA
  8. MOTRIN [Concomitant]
  9. SPIRONOLACTONE [Concomitant]

REACTIONS (2)
  - MYOCARDIAL INFARCTION [None]
  - RIGHT VENTRICULAR FAILURE [None]
